FAERS Safety Report 12982807 (Version 3)
Quarter: 2017Q1

REPORT INFORMATION
  Report Type: Spontaneous
  Country: EE (occurrence: EE)
  Receive Date: 20161129
  Receipt Date: 20170213
  Transmission Date: 20170428
  Serious: Yes (Other)
  Sender: FDA-Public Use
  Company Number: EE-ROCHE-1860023

PATIENT
  Sex: Female
  Weight: 75 kg

DRUGS (7)
  1. VALACICLOVIR [Concomitant]
     Active Substance: VALACYCLOVIR HYDROCHLORIDE
  2. LORATADIN [Concomitant]
     Active Substance: LORATADINE
  3. DICLOFENAC [Concomitant]
     Active Substance: DICLOFENAC
  4. OMEPRAZOL [Concomitant]
     Active Substance: OMEPRAZOLE
  5. ENOXAPARIN SODIUM. [Concomitant]
     Active Substance: ENOXAPARIN SODIUM
  6. CLARITHROMYCIN. [Concomitant]
     Active Substance: CLARITHROMYCIN
  7. AVASTIN [Suspect]
     Active Substance: BEVACIZUMAB
     Indication: CANCER SURGERY
     Dosage: CONCENTRATE FOR SOLUTION FOR INFUSION
     Route: 042
     Dates: start: 20160106, end: 20161121

REACTIONS (7)
  - Visual impairment [Recovered/Resolved]
  - Seizure [Recovered/Resolved]
  - Epilepsy [Recovering/Resolving]
  - Confusional state [Recovered/Resolved]
  - Encephalopathy [Recovered/Resolved]
  - Muscle twitching [Recovered/Resolved]
  - Posterior reversible encephalopathy syndrome [Recovering/Resolving]
